FAERS Safety Report 18552136 (Version 1)
Quarter: 2020Q4

REPORT INFORMATION
  Report Type: Spontaneous
  Country: NL (occurrence: NL)
  Receive Date: 20201126
  Receipt Date: 20201126
  Transmission Date: 20210114
  Serious: Yes (Hospitalization)
  Sender: FDA-Public Use
  Company Number: NL-009507513-2011NLD012106

PATIENT
  Sex: Male
  Weight: 70 kg

DRUGS (4)
  1. RISPERIDONE. [Concomitant]
     Active Substance: RISPERIDONE
     Dosage: COATED TABLET, 2 MG (MILLIGRAM)
  2. PROGRAFT [Concomitant]
     Active Substance: TACROLIMUS
     Dosage: 2X2MG
  3. RIBAVIRIN. [Suspect]
     Active Substance: RIBAVIRIN
     Indication: HEPATITIS E
     Dosage: RIBAVIRIN TABLET FILM-COATED 200MG; 2 X 2 TABLETS PER DAY (LATER 1 X 2, THEN ANOTHER 1X1 AND 1X 1/2)
     Dates: start: 2017
  4. MYCOPHENOLATE MOFETIL. [Concomitant]
     Active Substance: MYCOPHENOLATE MOFETIL
     Dosage: 2X750MG

REACTIONS (7)
  - Hostility [Unknown]
  - Speech disorder [Unknown]
  - Delusion of reference [Recovered/Resolved]
  - Anxiety [Unknown]
  - Chills [Unknown]
  - Hyperacusis [Unknown]
  - Paranoia [Recovered/Resolved]
